FAERS Safety Report 16152975 (Version 1)
Quarter: 2019Q2

REPORT INFORMATION
  Report Type: Spontaneous
  Country: CA (occurrence: CA)
  Receive Date: 20190403
  Receipt Date: 20190403
  Transmission Date: 20190711
  Serious: Yes (Other)
  Sender: FDA-Public Use
  Company Number: CA-PFIZER INC-2019130725

PATIENT
  Age: 41 Year
  Sex: Female

DRUGS (5)
  1. DEPO-PROVERA [Suspect]
     Active Substance: MEDROXYPROGESTERONE ACETATE
     Dosage: 150 MG/ML, UNK
     Dates: start: 2001, end: 2005
  2. COLD A TAK OREGANO OIL [Concomitant]
     Dosage: UNK UNK, AS NEEDED
  3. VITAMIN D [COLECALCIFEROL] [Concomitant]
     Active Substance: CHOLECALCIFEROL
     Dosage: 1000 UNITS, DAILY
     Route: 048
  4. TYLENOL [Concomitant]
     Active Substance: ACETAMINOPHEN
     Dosage: UNK UNK, AS NEEDED
  5. FISH OIL [Concomitant]
     Active Substance: FISH OIL
     Dosage: UNK UNK, AS NEEDED

REACTIONS (2)
  - Osteoporosis [Unknown]
  - Stress fracture [Unknown]

NARRATIVE: CASE EVENT DATE: 2005
